FAERS Safety Report 5944928-X (Version None)
Quarter: 2008Q4

REPORT INFORMATION
  Report Type: 
  Country: None (occurrence: None)
  Receive Date: 20081107
  Receipt Date: 20081028
  Transmission Date: 20090506
  Serious: Yes (Hospitalization)
  Sender: FDA-Public Use
  Company Number: CA-JNJFOC-20080706591

PATIENT
  Sex: Female
  Weight: 77 kg

DRUGS (9)
  1. REMICADE [Suspect]
  2. REMICADE [Suspect]
     Indication: CROHN'S DISEASE
  3. OMEPRAZOLE [Concomitant]
  4. CODEINE CONTIN [Concomitant]
  5. MERCAPTOPURINE [Concomitant]
  6. TOPIRAMATE [Concomitant]
  7. CRANBERRY [Concomitant]
  8. MAXALT [Concomitant]
  9. VITAMIN D AND CALCIUM [Concomitant]

REACTIONS (1)
  - CARDIAC MYXOMA [None]
